FAERS Safety Report 9014672 (Version 1)
Quarter: 2013Q1

REPORT INFORMATION
  Report Type: Spontaneous
  Country: US (occurrence: US)
  Receive Date: 20130115
  Receipt Date: 20130115
  Transmission Date: 20140127
  Serious: Yes (Hospitalization)
  Sender: FDA-Public Use
  Company Number: US-BAYER-2013-004002

PATIENT
  Age: 24 Year
  Sex: Female

DRUGS (5)
  1. YASMIN [Suspect]
  2. SKELAXIN [Concomitant]
  3. NAPROSYN [Concomitant]
  4. ZINC [Concomitant]
  5. VITAMIN C [Concomitant]

REACTIONS (1)
  - Deep vein thrombosis [None]
